FAERS Safety Report 5732479-7 (Version None)
Quarter: 2008Q2

REPORT INFORMATION
  Report Type: 
  Country: None (occurrence: None)
  Receive Date: 20080508
  Receipt Date: 20080424
  Transmission Date: 20081010
  Serious: Yes (Other)
  Sender: FDA-Public Use
  Company Number: US-ELI_LILLY_AND_COMPANY-US200804006131

PATIENT
  Age: 74 Year
  Sex: Female

DRUGS (3)
  1. EVISTA [Suspect]
  2. CHOLESTYRAMINE [Concomitant]
     Dates: start: 19930101
  3. HYDROCORTISONE [Concomitant]
     Dates: start: 20080417

REACTIONS (6)
  - ADDISON'S DISEASE [None]
  - ASTHENIA [None]
  - BRONCHITIS [None]
  - CYSTITIS [None]
  - DIARRHOEA [None]
  - NAUSEA [None]
